FAERS Safety Report 9913459 (Version 3)
Quarter: 2014Q2

REPORT INFORMATION
  Report Type: Spontaneous
  Country: DE (occurrence: DE)
  Receive Date: 20140220
  Receipt Date: 20140602
  Transmission Date: 20141212
  Serious: Yes (Life-Threatening, Hospitalization, Other)
  Sender: FDA-Public Use
  Company Number: DE-ASTELLAS-2014EU001320

PATIENT
  Age: 71 Year
  Sex: Male

DRUGS (4)
  1. PROGRAF [Suspect]
     Indication: HEART TRANSPLANT
     Dosage: UNK, OTHER
     Route: 048
  2. PROGRAF [Suspect]
     Indication: HEART TRANSPLANT
     Dosage: UNK, UNKNOWN FREQ.
     Route: 042
     Dates: start: 20140223
  3. MYCOPHENOLATE MOFETIL [Concomitant]
     Indication: TRANSPLANT REJECTION
     Dosage: 500 MG, 1-0-2
  4. CYCLOSPORINE [Concomitant]
     Indication: TRANSPLANT REJECTION
     Dosage: 45 MG,1-0-1

REACTIONS (3)
  - Sepsis [Recovered/Resolved]
  - General physical condition abnormal [Unknown]
  - Sepsis [Unknown]
